FAERS Safety Report 12520331 (Version 1)
Quarter: 2016Q2

REPORT INFORMATION
  Report Type: Spontaneous
  Country: US (occurrence: None)
  Receive Date: 20160630
  Receipt Date: 20160630
  Transmission Date: 20160815
  Serious: Yes (Death, Life-Threatening, Hospitalization)
  Sender: FDA-Public Use
  Company Number: None

PATIENT
  Age: 11 Year
  Sex: Female
  Weight: 49.46 kg

DRUGS (5)
  1. PREDNISONE. [Suspect]
     Active Substance: PREDNISONE
     Dosage: START  JAN 20TH THEN TAPERING PER MD
     Dates: start: 201601
  2. FERON GLUCONATE [Concomitant]
  3. ADALIMUMAB [Suspect]
     Active Substance: ADALIMUMAB
     Indication: COLITIS ULCERATIVE
     Dosage: SUBQ  X1 4/12 DECREASE TO 80 MG THEN 40 MG THEREAFTER
     Route: 058
  4. MESALAMINE. [Concomitant]
     Active Substance: MESALAMINE
  5. MECAPTOPURINE [Concomitant]

REACTIONS (5)
  - Hyperventilation [None]
  - Cardiogenic shock [None]
  - Chest pain [None]
  - Pulse absent [None]
  - Anaphylactic reaction [None]

NARRATIVE: CASE EVENT DATE: 20160609
